FAERS Safety Report 8013803-1 (Version None)
Quarter: 2011Q4

REPORT INFORMATION
  Report Type: 
  Country: None (occurrence: None)
  Receive Date: 20111229
  Receipt Date: 20111226
  Transmission Date: 20120403
  Serious: Yes (Other)
  Sender: FDA-Public Use
  Company Number: US-CEPHALON-2011006371

PATIENT
  Sex: Female

DRUGS (2)
  1. PROVIGIL [Suspect]
     Route: 048
     Dates: start: 20110929, end: 20111007
  2. PROVIGIL [Suspect]
     Route: 048
     Dates: start: 20110823, end: 20110928

REACTIONS (7)
  - ANGER [None]
  - EMOTIONAL DISORDER [None]
  - DEPRESSED MOOD [None]
  - MUSCLE SPASMS [None]
  - HEADACHE [None]
  - SUICIDAL IDEATION [None]
  - PAIN [None]
